FAERS Safety Report 5948660-8 (Version None)
Quarter: 2008Q4

REPORT INFORMATION
  Report Type: 
  Country: None (occurrence: None)
  Receive Date: 20081111
  Receipt Date: 20081028
  Transmission Date: 20090506
  Serious: Yes (Other)
  Sender: FDA-Public Use
  Company Number: IT-JNJFOC-20080506046

PATIENT
  Sex: Female

DRUGS (6)
  1. PALIPERIDONE [Suspect]
     Indication: SCHIZOPHRENIA
     Route: 048
  2. DEPAKENE [Suspect]
     Indication: DEPRESSION
     Route: 048
  3. TENORMIN [Concomitant]
     Indication: HYPERTENSION
     Route: 048
  4. UNIPRIL [Concomitant]
     Indication: HYPERTENSION
     Route: 048
  5. MODURETIC 5-50 [Concomitant]
     Indication: HYPERTENSION
  6. ZYPREXA [Concomitant]
     Indication: PSYCHOTIC DISORDER
     Route: 048

REACTIONS (1)
  - TRANSAMINASES INCREASED [None]
